FAERS Safety Report 10472923 (Version 2)
Quarter: 2014Q4

REPORT INFORMATION
  Report Type: Spontaneous
  Country: HK (occurrence: HK)
  Receive Date: 20140924
  Receipt Date: 20141021
  Transmission Date: 20150528
  Serious: Yes (Life-Threatening, Hospitalization, Other)
  Sender: FDA-Public Use
  Company Number: PHHY2014HK120419

PATIENT
  Age: 3 Year
  Sex: Female
  Weight: 14.4 kg

DRUGS (2)
  1. EXJADE [Suspect]
     Active Substance: DEFERASIROX
     Indication: THALASSAEMIA BETA
     Dosage: 375 MG, QD
     Route: 048
     Dates: start: 20130328, end: 20140626
  2. FOLIC ACID. [Concomitant]
     Active Substance: FOLIC ACID
     Indication: PRODUCT USED FOR UNKNOWN INDICATION
     Dosage: 1 MG, DAILY
     Route: 048
     Dates: start: 20110428

REACTIONS (13)
  - Blood lactic acid increased [Recovered/Resolved]
  - Hepatic function abnormal [Recovered/Resolved]
  - Metabolic acidosis [Unknown]
  - Encephalopathy [Recovered/Resolved]
  - Renal tubular acidosis [Recovered/Resolved]
  - Renal impairment [Unknown]
  - Confusional state [Unknown]
  - Abnormal behaviour [Unknown]
  - Vomiting [Unknown]
  - Ammonia increased [Recovered/Resolved]
  - Pyrexia [Unknown]
  - Upper respiratory tract infection [Unknown]
  - Altered state of consciousness [Unknown]

NARRATIVE: CASE EVENT DATE: 20140626
